FAERS Safety Report 8541787-6 (Version None)
Quarter: 2012Q3

REPORT INFORMATION
  Report Type: 
  Country: None (occurrence: None)
  Receive Date: 20120726
  Receipt Date: 20110830
  Transmission Date: 20120928
  Serious: No
  Sender: FDA-Public Use
  Company Number: US-ASTRAZENECA-2011SE52150

PATIENT
  Age: 60 Year
  Sex: Female
  Weight: 47.6 kg

DRUGS (3)
  1. CLONAZEPAM [Concomitant]
     Indication: BIPOLAR DISORDER
     Route: 048
     Dates: start: 20090101
  2. SEROQUEL [Suspect]
     Indication: BIPOLAR DISORDER
     Route: 048
     Dates: start: 20080101
  3. PROZAC [Concomitant]
     Indication: BIPOLAR DISORDER
     Route: 048
     Dates: start: 20090101

REACTIONS (3)
  - SLEEP DISORDER [None]
  - DRUG DOSE OMISSION [None]
  - RESTLESSNESS [None]
